FAERS Safety Report 6059104-2 (Version None)
Quarter: 2009Q1

REPORT INFORMATION
  Report Type: 
  Country: None (occurrence: None)
  Receive Date: 20090130
  Receipt Date: 20090120
  Transmission Date: 20090719
  Serious: Yes (Other)
  Sender: FDA-Public Use
  Company Number: US-PFIZER INC-2008160886

PATIENT
  Sex: Female
  Weight: 99.79 kg

DRUGS (5)
  1. GEODON [Suspect]
     Dates: start: 20070101
  2. DEPAKOTE [Concomitant]
     Dosage: UNK
  3. CELEXA [Concomitant]
     Dosage: UNK
  4. XANAX [Concomitant]
     Dosage: UNK
  5. COGENTIN [Concomitant]
     Dosage: UNK

REACTIONS (8)
  - ABDOMINAL PAIN [None]
  - CONVULSION [None]
  - DISORIENTATION [None]
  - FEELING ABNORMAL [None]
  - LOSS OF CONSCIOUSNESS [None]
  - OEDEMA PERIPHERAL [None]
  - SOMNAMBULISM [None]
  - WEIGHT INCREASED [None]
